FAERS Safety Report 12386739 (Version 1)
Quarter: 2016Q2

REPORT INFORMATION
  Report Type: Spontaneous
  Country: HR (occurrence: HR)
  Receive Date: 20160519
  Receipt Date: 20160519
  Transmission Date: 20160815
  Serious: Yes (Other)
  Sender: FDA-Public Use
  Company Number: HR-PFIZER INC-2016265779

PATIENT
  Age: 66 Year
  Sex: Male

DRUGS (3)
  1. XANAX XR [Suspect]
     Active Substance: ALPRAZOLAM
     Indication: ANXIETY
     Dosage: 1 MG, 2X/DAY
     Route: 048
     Dates: start: 2011
  2. ROSIX /01588602/ [Concomitant]
     Indication: HYPERLIPIDAEMIA
     Dosage: 10 MG, 1X/DAY IN THE EVENING
     Route: 048
     Dates: start: 2013
  3. RAMIPRIL FARMAL [Concomitant]
     Indication: ESSENTIAL HYPERTENSION
     Dosage: 5 MG, 1X/DAY
     Route: 048
     Dates: start: 2013

REACTIONS (3)
  - Aphasia [Unknown]
  - Dry mouth [Unknown]
  - Speech disorder [Unknown]

NARRATIVE: CASE EVENT DATE: 201602
